FAERS Safety Report 17090969 (Version 2)
Quarter: 2020Q1

REPORT INFORMATION
  Report Type: Spontaneous
  Country: ES (occurrence: ES)
  Receive Date: 20191129
  Receipt Date: 20200108
  Transmission Date: 20200409
  Serious: Yes (Death, Other)
  Sender: FDA-Public Use
  Company Number: ES-ROCHE-2351337

PATIENT
  Age: 9 Month
  Sex: Male

DRUGS (3)
  1. TACROLIMUS. [Concomitant]
     Active Substance: TACROLIMUS
  2. CELLCEPT [Suspect]
     Active Substance: MYCOPHENOLATE MOFETIL\MYCOPHENOLATE MOFETIL HYDROCHLORIDE
     Indication: HEART TRANSPLANT
     Route: 048
     Dates: start: 20190204, end: 20190204
  3. METILPREDNISOLONA [METHYLPREDNISOLONE] [Concomitant]
     Active Substance: METHYLPREDNISOLONE

REACTIONS (9)
  - Lactic acidosis [Unknown]
  - Accidental overdose [Fatal]
  - Hyperglycaemia [Fatal]
  - Intestinal ischaemia [Unknown]
  - Metabolic acidosis [Unknown]
  - General physical health deterioration [Unknown]
  - Gastritis haemorrhagic [Unknown]
  - Gastrointestinal necrosis [Fatal]
  - Abdominal distension [Unknown]

NARRATIVE: CASE EVENT DATE: 20190204
